FAERS Safety Report 16334035 (Version 3)
Quarter: 2019Q3

REPORT INFORMATION
  Report Type: Spontaneous
  Country: NL (occurrence: NL)
  Receive Date: 20190520
  Receipt Date: 20190904
  Transmission Date: 20191004
  Serious: Yes (Other)
  Sender: FDA-Public Use
  Company Number: NL-ELI_LILLY_AND_COMPANY-NL201905007839

PATIENT
  Sex: Female

DRUGS (1)
  1. FORSTEO [Suspect]
     Active Substance: TERIPARATIDE
     Indication: PRODUCT USED FOR UNKNOWN INDICATION
     Dosage: UNK, UNKNOWN
     Route: 065
     Dates: start: 2017, end: 201904

REACTIONS (5)
  - Cardiac disorder [Unknown]
  - Asthma [Unknown]
  - Sleep disorder due to a general medical condition [Recovered/Resolved]
  - Dyspnoea [Recovered/Resolved]
  - Lung disorder [Unknown]
